FAERS Safety Report 11905678 (Version 2)
Quarter: 2016Q1

REPORT INFORMATION
  Report Type: Report from Study
  Country: NL (occurrence: NL)
  Receive Date: 20160110
  Receipt Date: 20160217
  Transmission Date: 20160526
  Serious: Yes (Hospitalization)
  Sender: FDA-Public Use
  Company Number: NL-TEVA-624073ISR

PATIENT
  Age: 64 Year
  Sex: Female

DRUGS (9)
  1. OXAZEPAM. [Concomitant]
     Active Substance: OXAZEPAM
     Dosage: 10 MILLIGRAM DAILY;
  2. PANTOPRAZOL [Concomitant]
     Active Substance: PANTOPRAZOLE SODIUM
     Dosage: 40 MILLIGRAM DAILY;
  3. SPIRONOLACTON 25 MG [Concomitant]
     Dosage: 50 MILLIGRAM DAILY;
  4. VESICARE [Concomitant]
     Active Substance: SOLIFENACIN SUCCINATE
     Dosage: 5 MILLIGRAM DAILY;
  5. ACETYLSAL-CARD [Concomitant]
     Dosage: 80 MILLIGRAM DAILY;
  6. DILTIAZEM [Concomitant]
     Active Substance: DILTIAZEM
     Dosage: 200 MILLIGRAM DAILY;
  7. COPAXONE [Suspect]
     Active Substance: GLATIRAMER ACETATE
     Indication: MULTIPLE SCLEROSIS
     Dosage: 20 MILLIGRAM/MILLILITERS DAILY;
     Route: 058
     Dates: start: 20101229
  8. LASIX [Concomitant]
     Active Substance: FUROSEMIDE
     Dosage: 500 MILLIGRAM DAILY;
  9. VITAMINE D [Concomitant]

REACTIONS (2)
  - Pain in extremity [Not Recovered/Not Resolved]
  - Chest discomfort [Not Recovered/Not Resolved]

NARRATIVE: CASE EVENT DATE: 20151205
